FAERS Safety Report 5009480-4 (Version None)
Quarter: 2006Q2

REPORT INFORMATION
  Report Type: 
  Country: None (occurrence: None)
  Receive Date: 20060524
  Receipt Date: 20060516
  Transmission Date: 20061013
  Serious: Yes (Hospitalization)
  Sender: FDA-Public Use
  Company Number: 2006AC00965

PATIENT
  Age: 81 Year
  Sex: Male

DRUGS (6)
  1. SEROQUEL [Suspect]
     Indication: MAJOR DEPRESSION
     Route: 048
     Dates: start: 20050101, end: 20060410
  2. LORAMET [Interacting]
     Route: 048
     Dates: start: 20050101, end: 20060410
  3. DISTRANEURINE [Concomitant]
     Route: 048
     Dates: start: 20010101, end: 20060410
  4. HALOPERIDOL [Concomitant]
     Route: 048
     Dates: start: 20051101, end: 20060410
  5. ARICEPT [Concomitant]
     Indication: PARKINSON'S DISEASE
     Route: 048
     Dates: start: 20010101, end: 20060410
  6. AMERIDE [Concomitant]
     Indication: HYPERTENSION
     Dosage: LONG TERM USE
     Route: 048
     Dates: end: 20060410

REACTIONS (6)
  - BLOOD CREATININE INCREASED [None]
  - BLOOD SODIUM DECREASED [None]
  - CEREBRAL ATROPHY [None]
  - CONFUSIONAL STATE [None]
  - DRUG INTERACTION [None]
  - LEUKOENCEPHALOPATHY [None]
